FAERS Safety Report 9880573 (Version 1)
Quarter: 2014Q1

REPORT INFORMATION
  Report Type: Spontaneous
  Country: IS (occurrence: IS)
  Receive Date: 20140207
  Receipt Date: 20140207
  Transmission Date: 20141002
  Serious: Yes (Other)
  Sender: FDA-Public Use
  Company Number: IS-UCBSA-110887

PATIENT
  Sex: Female

DRUGS (2)
  1. KEPPRA [Suspect]
     Indication: EPILEPSY
  2. LEVETIRACETAM [Concomitant]
     Dosage: RECEIVED ONE DAY

REACTIONS (2)
  - Extrapyramidal disorder [Unknown]
  - Weight decreased [Unknown]
